FAERS Safety Report 18307163 (Version 1)
Quarter: 2020Q3

REPORT INFORMATION
  Report Type: Report from Study
  Country: US (occurrence: US)
  Receive Date: 20200924
  Receipt Date: 20200924
  Transmission Date: 20201103
  Serious: Yes (Hospitalization, Other)
  Sender: FDA-Public Use
  Company Number: US-SA-2015SA160386

PATIENT

DRUGS (7)
  1. ALEMTUZUMAB [Suspect]
     Active Substance: ALEMTUZUMAB
     Indication: MULTIPLE SCLEROSIS
     Dosage: 12 MG,QD
     Route: 041
     Dates: start: 20150914, end: 20150918
  2. ASCORBIC ACID. [Concomitant]
     Active Substance: ASCORBIC ACID
     Dosage: 1500 MG,BID
     Dates: start: 201510
  3. PROVIGIL [Concomitant]
     Active Substance: MODAFINIL
     Dosage: 200 MG,UNK
     Dates: start: 2016
  4. ERGOCALCIFEROL. [Concomitant]
     Active Substance: ERGOCALCIFEROL
     Dosage: 5000 IU,QD
     Dates: start: 2010
  5. VALACICLOVIR [Concomitant]
     Active Substance: VALACYCLOVIR HYDROCHLORIDE
     Dosage: 1 G,QD
     Dates: start: 2015
  6. SENNA [Concomitant]
     Active Substance: SENNA LEAF\SENNOSIDES\SENNOSIDES A AND B
     Dosage: 8.6 MG,UNK
     Dates: start: 201510
  7. MIRALAX [Concomitant]
     Active Substance: POLYETHYLENE GLYCOL 3350
     Dosage: 1 DF,QD
     Dates: start: 201510

REACTIONS (13)
  - Blood count abnormal [Not Recovered/Not Resolved]
  - Dysphagia [Recovered/Resolved]
  - Blood pressure decreased [Not Recovered/Not Resolved]
  - Skin lesion [Recovered/Resolved]
  - Hypophagia [Recovered/Resolved]
  - Pallor [Not Recovered/Not Resolved]
  - Multiple sclerosis relapse [Recovered/Resolved]
  - Weight decreased [Not Recovered/Not Resolved]
  - Neoplasm skin [Recovered/Resolved]
  - Mobility decreased [Recovered/Resolved]
  - Immune system disorder [Not Recovered/Not Resolved]
  - Cystitis [Recovered/Resolved]
  - Asthenia [Not Recovered/Not Resolved]

NARRATIVE: CASE EVENT DATE: 2015
